FAERS Safety Report 10582242 (Version 2)
Quarter: 2014Q4

REPORT INFORMATION
  Report Type: Spontaneous
  Country: GB (occurrence: GB)
  Receive Date: 20141113
  Receipt Date: 20141126
  Transmission Date: 20150529
  Serious: Yes (Life-Threatening, Hospitalization, Disabling)
  Sender: FDA-Public Use
  Company Number: GB-TEVA-520850ISR

PATIENT
  Age: 82 Year
  Sex: Female
  Weight: 116 kg

DRUGS (11)
  1. LATANOPROST. [Concomitant]
     Active Substance: LATANOPROST
     Dosage: 50MICROGRAMS/ML
  2. LERCANIDIPINE [Concomitant]
     Active Substance: LERCANIDIPINE
     Indication: HYPERTENSION
     Dosage: 10 MILLIGRAM DAILY; 10 MG, QD.
     Dates: start: 20131101
  3. LACRI-LUBE [Concomitant]
     Dosage: AT NIGHT. EYE OINTMENT
  4. NAPROXEN. [Suspect]
     Active Substance: NAPROXEN
     Indication: OSTEOARTHRITIS
     Dosage: 500 MILLIGRAM DAILY; GASTRO-RESISTANT TABLET. 250MG, BID.
     Route: 048
     Dates: start: 20140825, end: 20141007
  5. XARELTO [Suspect]
     Active Substance: RIVAROXABAN
     Indication: CEREBROVASCULAR ACCIDENT PROPHYLAXIS
  6. BRIMONIDINE [Concomitant]
     Active Substance: BRIMONIDINE\BRIMONIDINE TARTRATE
  7. BRINZOLAMIDE [Concomitant]
     Active Substance: BRINZOLAMIDE
     Dosage: 10MG/ML
  8. XARELTO [Suspect]
     Active Substance: RIVAROXABAN
     Indication: ATRIAL FIBRILLATION
     Dosage: 20 MILLIGRAM DAILY; 20 MG, QD.
     Route: 048
     Dates: start: 20141003, end: 20141007
  9. METFORMIN [Concomitant]
     Active Substance: METFORMIN HYDROCHLORIDE
     Indication: DIABETES MELLITUS
     Dosage: 1000 MILLIGRAM DAILY; START DATE NOT KNOWN BUT PREADMISSION
     Dates: start: 20131101
  10. ENOXAPARIN [Suspect]
     Active Substance: ENOXAPARIN
     Indication: THROMBOSIS PROPHYLAXIS
     Dosage: 40 MILLIGRAM DAILY; SOLUTION FOR INJECTION IN PRE-FILLED SYRINGE. 40 MG, QD.
     Route: 058
     Dates: start: 20140824, end: 20141007
  11. DIGOXIN. [Concomitant]
     Active Substance: DIGOXIN
     Indication: VENTRICULAR TACHYCARDIA
     Dosage: 125 MICROGRAM DAILY;
     Route: 048
     Dates: start: 20141002

REACTIONS (6)
  - Duodenal ulcer haemorrhage [Recovering/Resolving]
  - Small intestinal haemorrhage [Recovering/Resolving]
  - Duodenal ulcer [Recovering/Resolving]
  - Loss of consciousness [Unknown]
  - Nausea [Unknown]
  - Atrial fibrillation [Unknown]

NARRATIVE: CASE EVENT DATE: 201410
